FAERS Safety Report 17862827 (Version 1)
Quarter: 2020Q2

REPORT INFORMATION
  Report Type: Report from Study
  Country: None (occurrence: GR)
  Receive Date: 20200605
  Receipt Date: 20200605
  Transmission Date: 20200714
  Serious: Yes (Hospitalization, Disabling)
  Sender: FDA-Public Use
  Company Number: GR-ABBVIE-20K-066-3430077-00

PATIENT
  Sex: Male

DRUGS (5)
  1. OLARTAN [Concomitant]
     Active Substance: OLMESARTAN MEDOXOMIL
     Indication: HYPERTENSION
     Route: 048
  2. MIRAPEXIN [Concomitant]
     Active Substance: PRAMIPEXOLE
     Indication: PRODUCT USED FOR UNKNOWN INDICATION
  3. SYMMETREL [Concomitant]
     Active Substance: AMANTADINE HYDROCHLORIDE
     Indication: HYPERKINESIA
     Dosage: ONE  TO THREE TIMES DAILY
     Route: 048
     Dates: start: 20191010
  4. MACROGOL [Concomitant]
     Active Substance: POLYETHYLENE GLYCOLS
     Indication: CONSTIPATION
  5. DUODOPA [Suspect]
     Active Substance: CARBIDOPA\LEVODOPA
     Indication: PARKINSON^S DISEASE
     Dosage: MORNING DOSE: 5ML; CONTINUOUS RATE: 3ML/H; EXTRA DOSE: 2ML
     Route: 050
     Dates: start: 20190710

REACTIONS (3)
  - Gait inability [Not Recovered/Not Resolved]
  - Illusion [Not Recovered/Not Resolved]
  - Somnolence [Not Recovered/Not Resolved]
